FAERS Safety Report 12478434 (Version 1)
Quarter: 2016Q2

REPORT INFORMATION
  Report Type: Spontaneous
  Country: GB (occurrence: GB)
  Receive Date: 20160618
  Receipt Date: 20160618
  Transmission Date: 20160815
  Serious: Yes (Hospitalization)
  Sender: FDA-Public Use
  Company Number: GB-AUROBINDO-AUR-APL-2016-07621

PATIENT
  Age: 82 Year
  Sex: Male

DRUGS (2)
  1. FLUCONAZOLE. [Suspect]
     Active Substance: FLUCONAZOLE
     Indication: DIABETIC FOOT
     Dosage: 400 MG, ONCE A DAY
     Route: 048
     Dates: start: 201604, end: 20160523
  2. GLICLAZIDE [Suspect]
     Active Substance: GLICLAZIDE
     Indication: TYPE 2 DIABETES MELLITUS
     Dosage: 40 MG, ONCE A DAY, IN THE MORNING
     Route: 048
     Dates: end: 20160523

REACTIONS (2)
  - Hypoglycaemia [Recovered/Resolved]
  - Potentiating drug interaction [Recovered/Resolved]
